FAERS Safety Report 20102499 (Version 1)
Quarter: 2021Q4

REPORT INFORMATION
  Report Type: Spontaneous
  Country: TW (occurrence: TW)
  Receive Date: 20211123
  Receipt Date: 20211123
  Transmission Date: 20220303
  Serious: Yes (Life-Threatening, Other)
  Sender: FDA-Public Use
  Company Number: TW-BAYER-2021A253824

PATIENT
  Sex: Male
  Weight: 61 kg

DRUGS (1)
  1. XOFIGO [Suspect]
     Active Substance: RADIUM RA-223 DICHLORIDE

REACTIONS (2)
  - General physical health deterioration [None]
  - Haemoglobin decreased [None]
